FAERS Safety Report 9693729 (Version 1)
Quarter: 2013Q4

REPORT INFORMATION
  Report Type: Spontaneous
  Country: US (occurrence: US)
  Receive Date: 20131118
  Receipt Date: 20131118
  Transmission Date: 20140711
  Serious: Yes (Hospitalization)
  Sender: FDA-Public Use
  Company Number: US-ROXANE LABORATORIES, INC.-2013-RO-01828RO

PATIENT
  Sex: Male

DRUGS (1)
  1. QUETIAPINE FUMARATE [Suspect]
     Dosage: 1200 MG

REACTIONS (4)
  - Overdose [Unknown]
  - Respiratory depression [Unknown]
  - Lethargy [Unknown]
  - Hypotension [Unknown]
